FAERS Safety Report 15748405 (Version 1)
Quarter: 2018Q4

REPORT INFORMATION
  Report Type: Report from Study
  Country: JP (occurrence: JP)
  Receive Date: 20181221
  Receipt Date: 20181221
  Transmission Date: 20190205
  Serious: Yes (Other)
  Sender: FDA-Public Use
  Company Number: JP-GLAXOSMITHKLINE-JP2018JPN229694

PATIENT

DRUGS (2)
  1. FLUTICASONE FUROATE + VILANTEROL TRIFENATATE [Suspect]
     Active Substance: FLUTICASONE FUROATE\VILANTEROL TRIFENATATE
     Dosage: UNK
     Route: 055
  2. FENOTEROL [Suspect]
     Active Substance: FENOTEROL
     Dosage: OVER 20 INHALATION/DAY
     Route: 055

REACTIONS (2)
  - Hypokalaemia [Recovering/Resolving]
  - Prescribed overdose [Unknown]
